FAERS Safety Report 7102160-0 (Version None)
Quarter: 2010Q4

REPORT INFORMATION
  Report Type: 
  Country: None (occurrence: None)
  Receive Date: 20101115
  Receipt Date: 20101104
  Transmission Date: 20110411
  Serious: Yes (Other)
  Sender: FDA-Public Use
  Company Number: ZA-ROCHE-738888

PATIENT
  Age: 6 Year
  Sex: Female

DRUGS (1)
  1. ACTEMRA [Suspect]
     Route: 042
     Dates: start: 20081017

REACTIONS (1)
  - RADIUS FRACTURE [None]
